FAERS Safety Report 15309797 (Version 1)
Quarter: 2018Q3

REPORT INFORMATION
  Report Type: Spontaneous
  Country: FR (occurrence: FR)
  Receive Date: 20180823
  Receipt Date: 20180823
  Transmission Date: 20181010
  Serious: Yes (Hospitalization, Other)
  Sender: FDA-Public Use
  Company Number: FR-AUROBINDO-AUR-APL-2018-042687

PATIENT
  Age: 82 Year
  Sex: Female
  Weight: 70 kg

DRUGS (1)
  1. AMIODARONE [Suspect]
     Active Substance: AMIODARONE
     Indication: ARRHYTHMIA
     Dosage: ()
     Route: 048
     Dates: start: 20160114, end: 20160628

REACTIONS (2)
  - Hyperthyroidism [Recovered/Resolved with Sequelae]
  - Goitre [Recovered/Resolved with Sequelae]

NARRATIVE: CASE EVENT DATE: 201606
